FAERS Safety Report 20563873 (Version 2)
Quarter: 2022Q2

REPORT INFORMATION
  Report Type: Report from Study
  Country: US (occurrence: US)
  Receive Date: 20220308
  Receipt Date: 20220617
  Transmission Date: 20220721
  Serious: No
  Sender: FDA-Public Use
  Company Number: US-NOVARTISTESTPH-NVSC2022US053170

PATIENT
  Sex: Female

DRUGS (1)
  1. ENTRESTO [Suspect]
     Active Substance: SACUBITRIL\VALSARTAN
     Indication: Product used for unknown indication
     Dosage: 1 DOSAGE FORM, BID (24/26 MG)
     Route: 048
     Dates: start: 202202

REACTIONS (7)
  - Memory impairment [Unknown]
  - Illness [Unknown]
  - Chest pain [Unknown]
  - Anxiety [Unknown]
  - Cough [Unknown]
  - Dyspnoea [Unknown]
  - Ill-defined disorder [Unknown]
